FAERS Safety Report 4647615-3 (Version None)
Quarter: 2005Q2

REPORT INFORMATION
  Report Type: 
  Country: None (occurrence: None)
  Receive Date: 20050426
  Receipt Date: 20050419
  Transmission Date: 20051028
  Serious: Yes (Other)
  Sender: FDA-Public Use
  Company Number: HQWYE129219APR05

PATIENT
  Age: 49 Year
  Sex: Male

DRUGS (1)
  1. CORDARONE [Suspect]
     Dosage: ORAL
     Route: 048

REACTIONS (2)
  - HYPERTHYROIDISM [None]
  - LETHARGY [None]
